FAERS Safety Report 7941843-7 (Version None)
Quarter: 2011Q4

REPORT INFORMATION
  Report Type: 
  Country: None (occurrence: None)
  Receive Date: 20111128
  Receipt Date: 20111117
  Transmission Date: 20120403
  Serious: No
  Sender: FDA-Public Use
  Company Number: RU-SANOFI-AVENTIS-2011SA052393

PATIENT
  Age: 77 Year
  Sex: Female

DRUGS (4)
  1. ATENOLOL [Concomitant]
     Indication: ATRIAL FIBRILLATION
     Dosage: 12.5-25 MG
     Route: 048
  2. MULTAQ [Suspect]
     Indication: ATRIAL FIBRILLATION
     Route: 048
     Dates: start: 20101201, end: 20110801
  3. MULTAQ [Suspect]
     Route: 048
     Dates: start: 20110801
  4. NIFEDIPINE [Concomitant]
     Indication: HYPERTENSION
     Route: 048

REACTIONS (2)
  - BLOOD CREATININE INCREASED [None]
  - BLOOD UREA INCREASED [None]
